FAERS Safety Report 6108681-1 (Version None)
Quarter: 2009Q1

REPORT INFORMATION
  Report Type: 
  Country: None (occurrence: None)
  Receive Date: 20090305
  Receipt Date: 20090218
  Transmission Date: 20090719
  Serious: Yes (Hospitalization)
  Sender: FDA-Public Use
  Company Number: 2009000466

PATIENT
  Age: 70 Year
  Sex: Female

DRUGS (7)
  1. ERLOTINIB                       (TABLET)       (ERLOTINIB) [Suspect]
     Indication: PANCREATIC CARCINOMA METASTATIC
     Dosage: (100 MG), ORAL
     Route: 048
     Dates: start: 20081107, end: 20081127
  2. GEMCITABINE [Suspect]
     Indication: PANCREATIC CARCINOMA METASTATIC
     Dosage: (1125 MG), INTRAVENOUS
     Route: 042
     Dates: start: 20081107, end: 20081127
  3. INSULINA      (INSULIN) [Concomitant]
  4. VALSARTAN [Concomitant]
  5. HIDROCLOROTIAZIDA      (HYDROCHLOROTHIAZIDE) [Concomitant]
  6. OMEPRAZOLE [Concomitant]
  7. LOPERMIDA          (LOPERAMIDE) [Concomitant]

REACTIONS (2)
  - FEBRILE NEUTROPENIA [None]
  - MUCOSAL INFLAMMATION [None]
